FAERS Safety Report 5049236-X (Version None)
Quarter: 2006Q3

REPORT INFORMATION
  Report Type: 
  Country: None (occurrence: None)
  Receive Date: 20060707
  Receipt Date: 20060630
  Transmission Date: 20061208
  Serious: Yes (Hospitalization)
  Sender: FDA-Public Use
  Company Number: USA-2006-0024552

PATIENT
  Age: 41 Year
  Sex: Male

DRUGS (1)
  1. MORPHINE SULFATE [Suspect]
     Indication: PAIN
     Dosage: SEE IMAGE
     Route: 048

REACTIONS (5)
  - DYSPHORIA [None]
  - INADEQUATE ANALGESIA [None]
  - PAIN [None]
  - PARAESTHESIA [None]
  - SOMNOLENCE [None]
